FAERS Safety Report 10158007 (Version 1)
Quarter: 2014Q2

REPORT INFORMATION
  Report Type: Spontaneous
  Country: TR (occurrence: TR)
  Receive Date: 20140507
  Receipt Date: 20140507
  Transmission Date: 20141212
  Serious: Yes (Other)
  Sender: FDA-Public Use
  Company Number: TR-GLAXOSMITHKLINE-B0991083A

PATIENT
  Sex: Female

DRUGS (1)
  1. CLINDOXYL [Suspect]
     Indication: ACNE
     Route: 061

REACTIONS (5)
  - Angioedema [Recovered/Resolved]
  - Dermatitis allergic [Recovered/Resolved]
  - Oedema [Recovered/Resolved]
  - Erythema [Recovered/Resolved]
  - Product quality issue [Unknown]
